FAERS Safety Report 23052959 (Version 1)
Quarter: 2023Q4

REPORT INFORMATION
  Report Type: Spontaneous
  Country: US (occurrence: US)
  Receive Date: 20231011
  Receipt Date: 20231011
  Transmission Date: 20240110
  Serious: No
  Sender: FDA-Public Use
  Company Number: US-CADILA HEALTHCARE LIMITED-US-ZYDUS-096149

PATIENT

DRUGS (1)
  1. LENALIDOMIDE [Suspect]
     Active Substance: LENALIDOMIDE
     Indication: Plasma cell myeloma
     Dosage: 1 CAPSULE BY MOUTH EVERY MONDAY, WEDNESDAY, AND FRIDAY.
     Route: 048
     Dates: start: 202306, end: 2023

REACTIONS (4)
  - Gingival pain [Unknown]
  - Lymphadenopathy [Unknown]
  - Dysphagia [Unknown]
  - Product substitution issue [Unknown]
